FAERS Safety Report 17920839 (Version 1)
Quarter: 2020Q2

REPORT INFORMATION
  Report Type: Other
  Country: ES (occurrence: ES)
  Receive Date: 20200622
  Receipt Date: 20200622
  Transmission Date: 20200714
  Serious: Yes (Hospitalization)
  Sender: FDA-Public Use
  Company Number: ES-CELLTRION INC.-2020ES023380

PATIENT

DRUGS (4)
  1. DOLQUINE [Suspect]
     Active Substance: HYDROXYCHLOROQUINE SULFATE
     Indication: POLYMYOSITIS
     Dosage: 200 MG, EVERY 24 HOURS
     Route: 048
     Dates: start: 2006, end: 20180619
  2. MICOFENOLATO DE MOFETILO STADA [Suspect]
     Active Substance: MYCOPHENOLATE MOFETIL
     Indication: POLYMYOSITIS
     Dosage: 500 MG, EVERY 12 HOURS
     Route: 048
     Dates: start: 201803, end: 20180507
  3. MICOFENOLATO DE MOFETILO STADA [Suspect]
     Active Substance: MYCOPHENOLATE MOFETIL
     Dosage: 1 G, EVERY 12 HOURS
     Route: 048
     Dates: start: 20180508, end: 20180619
  4. RITUXIMAB (UNKNOWN) [Suspect]
     Active Substance: RITUXIMAB
     Indication: POLYMYOSITIS
     Dosage: 5 G, TOTAL
     Route: 042
     Dates: start: 2015, end: 2018

REACTIONS (2)
  - Off label use [Unknown]
  - Agranulocytosis [Recovered/Resolved]

NARRATIVE: CASE EVENT DATE: 20180617
